FAERS Safety Report 21686487 (Version 1)
Quarter: 2022Q4

REPORT INFORMATION
  Report Type: Report from Study
  Country: MX (occurrence: MX)
  Receive Date: 20221206
  Receipt Date: 20221206
  Transmission Date: 20230113
  Serious: Yes (Hospitalization)
  Sender: FDA-Public Use
  Company Number: MX-GILEAD-2022-0607348

PATIENT
  Age: 49 Year
  Sex: Female

DRUGS (3)
  1. SOFOSBUVIR\VELPATASVIR [Suspect]
     Active Substance: SOFOSBUVIR\VELPATASVIR
     Indication: Hepatitis C
     Dosage: 1 DOSAGE FORM, QD
     Route: 048
     Dates: start: 20221108, end: 20221129
  2. RIBAVIRIN [Suspect]
     Active Substance: RIBAVIRIN
     Indication: Hepatitis C
     Dosage: 1 DOSAGE FORM, BID
     Route: 048
     Dates: start: 20221108, end: 20221129
  3. URSODIOL [Suspect]
     Active Substance: URSODIOL
     Indication: Cholangitis
     Dosage: 1 DOSAGE FORM, TID
     Route: 048
     Dates: start: 20220401, end: 20221130

REACTIONS (4)
  - Mental disorder [Unknown]
  - Abdominal pain upper [Unknown]
  - Jaundice [Unknown]
  - Fatigue [Unknown]

NARRATIVE: CASE EVENT DATE: 20221115
